FAERS Safety Report 16074270 (Version 1)
Quarter: 2019Q1

REPORT INFORMATION
  Report Type: Report from Study
  Country: US (occurrence: US)
  Receive Date: 20190314
  Receipt Date: 20190314
  Transmission Date: 20190418
  Serious: Yes (Hospitalization, Other)
  Sender: FDA-Public Use
  Company Number: US-GILEAD-2019-0396263

PATIENT
  Age: 18 Year
  Sex: Female

DRUGS (18)
  1. LETAIRIS [Concomitant]
     Active Substance: AMBRISENTAN
  2. LEVALBUTEROL [LEVOSALBUTAMOL HYDROCHLORIDE] [Concomitant]
  3. ADCIRCA [Concomitant]
     Active Substance: TADALAFIL
  4. SODIUM CHLORIDE. [Concomitant]
     Active Substance: SODIUM CHLORIDE
  5. OSELTAMIVIR [Concomitant]
     Active Substance: OSELTAMIVIR
  6. PULMOZYME [Concomitant]
     Active Substance: DORNASE ALFA
  7. FLUOXETINE [Concomitant]
     Active Substance: FLUOXETINE HYDROCHLORIDE
  8. DOXYCYCLINE HYCLATE. [Concomitant]
     Active Substance: DOXYCYCLINE HYCLATE
  9. AZITHROMYCIN ANHYDROUS. [Concomitant]
     Active Substance: AZITHROMYCIN ANHYDROUS
  10. TADALAFIL. [Concomitant]
     Active Substance: TADALAFIL
  11. CREON [Concomitant]
     Active Substance: PANCRELIPASE AMYLASE\PANCRELIPASE LIPASE\PANCRELIPASE PROTEASE
  12. PARI [Concomitant]
  13. MOMETASONE [Concomitant]
     Active Substance: MOMETASONE
  14. SMZ-TMP [Concomitant]
     Active Substance: SULFAMETHOXAZOLE\TRIMETHOPRIM
  15. CIPROFLOXACIN. [Concomitant]
     Active Substance: CIPROFLOXACIN
  16. QVAR [Concomitant]
     Active Substance: BECLOMETHASONE DIPROPIONATE
  17. LEVOFLOXACIN. [Concomitant]
     Active Substance: LEVOFLOXACIN
  18. AZTREONAM LYSINE [Suspect]
     Active Substance: AZTREONAM LYSINE
     Indication: CYSTIC FIBROSIS
     Dosage: 75 MG, TID
     Route: 055
     Dates: start: 20140605

REACTIONS (1)
  - Cystic fibrosis [Unknown]

NARRATIVE: CASE EVENT DATE: 20190207
